FAERS Safety Report 19592544 (Version 1)
Quarter: 2021Q3

REPORT INFORMATION
  Report Type: Spontaneous
  Country: US (occurrence: US)
  Receive Date: 20210721
  Receipt Date: 20210721
  Transmission Date: 20211014
  Serious: No
  Sender: FDA-Public Use
  Company Number: None

PATIENT
  Age: 49 Year
  Sex: Female
  Weight: 99.9 kg

DRUGS (6)
  1. BIRTH CONTROL [Concomitant]
     Active Substance: UNSPECIFIED INGREDIENT
  2. PROZAC [Concomitant]
     Active Substance: FLUOXETINE HYDROCHLORIDE
  3. BIOTIN [Concomitant]
     Active Substance: BIOTIN
  4. NEUTROGENA ULTRA SHEER BODY MIST SUNSCREEN BROAD SPECTRUM SPF 100 PLUS [Suspect]
     Active Substance: AVOBENZONE\HOMOSALATE\OCTISALATE\OCTOCRYLENE\OXYBENZONE
     Indication: PROPHYLAXIS AGAINST SOLAR RADIATION
     Dosage: ?          QUANTITY:141 SPRAY(S);?
     Route: 061
     Dates: start: 20210706, end: 20210707
  5. FERROUS SULFATE. [Concomitant]
     Active Substance: FERROUS SULFATE
  6. WELLBUTRIN [Concomitant]
     Active Substance: BUPROPION HYDROCHLORIDE

REACTIONS (1)
  - Blister [None]

NARRATIVE: CASE EVENT DATE: 20210706
